FAERS Safety Report 24821666 (Version 1)
Quarter: 2025Q1

REPORT INFORMATION
  Report Type: Spontaneous
  Country: US (occurrence: US)
  Receive Date: 20250108
  Receipt Date: 20250108
  Transmission Date: 20250409
  Serious: Yes (Death, Other)
  Sender: PERRIGO
  Company Number: US-PERRIGO-25US000310

PATIENT
  Age: 23 Year
  Sex: Female

DRUGS (4)
  1. IBUPROFEN [Suspect]
     Active Substance: IBUPROFEN
     Indication: Suspected suicide
     Route: 048
  2. ACETAMINOPHEN [Suspect]
     Active Substance: ACETAMINOPHEN
     Indication: Suspected suicide
     Route: 048
  3. ISOPROPANOLAMINE [Suspect]
     Active Substance: ISOPROPANOLAMINE
     Indication: Suspected suicide
     Route: 048
  4. BLACK PEPPER [Suspect]
     Active Substance: BLACK PEPPER
     Indication: Abortion induced
     Route: 048

REACTIONS (9)
  - Toxicity to various agents [Fatal]
  - Completed suicide [Fatal]
  - Foetal heart rate abnormal [Recovered/Resolved]
  - Hypotension [Fatal]
  - Metabolic acidosis [Fatal]
  - Shock [Fatal]
  - Cytokine storm [Fatal]
  - Seizure [Fatal]
  - Coagulopathy [Fatal]

NARRATIVE: CASE EVENT DATE: 20230101
